FAERS Safety Report 6967537-2 (Version None)
Quarter: 2010Q3

REPORT INFORMATION
  Report Type: 
  Country: None (occurrence: None)
  Receive Date: 20100907
  Receipt Date: 20100827
  Transmission Date: 20110219
  Serious: No
  Sender: FDA-Public Use
  Company Number: US-US-EMD SERONO, INC.-7013999

PATIENT
  Sex: Female
  Weight: 78 kg

DRUGS (8)
  1. REBIF [Suspect]
     Indication: RELAPSING-REMITTING MULTIPLE SCLEROSIS
     Route: 058
     Dates: start: 20100804, end: 20100101
  2. REBIF [Suspect]
     Route: 058
     Dates: start: 20100101
  3. NAPROXEN [Concomitant]
     Indication: PREMEDICATION
     Dates: start: 20100801
  4. PROVERA [Concomitant]
     Route: 048
  5. PREVACID [Concomitant]
     Route: 048
  6. CLARITIN [Concomitant]
     Route: 048
  7. VENTOLIN HFA [Concomitant]
     Indication: WHEEZING
     Route: 055
  8. MOTRIN [Concomitant]
     Indication: PAIN
     Route: 048

REACTIONS (8)
  - CENTRAL NERVOUS SYSTEM LESION [None]
  - HYPOAESTHESIA ORAL [None]
  - HYPOGEUSIA [None]
  - MUSCLE TIGHTNESS [None]
  - OPTIC NEURITIS [None]
  - SENSORY LOSS [None]
  - VERTIGO [None]
  - VOMITING [None]
